FAERS Safety Report 24397820 (Version 1)
Quarter: 2024Q4

REPORT INFORMATION
  Report Type: Spontaneous
  Country: US (occurrence: US)
  Receive Date: 20241004
  Receipt Date: 20241004
  Transmission Date: 20250114
  Serious: Yes (Other)
  Sender: MYLAN
  Company Number: US-MYLANLABS-2024M1089107

PATIENT
  Age: 60 Year
  Sex: Male

DRUGS (1)
  1. FENTANYL [Suspect]
     Active Substance: FENTANYL
     Indication: Product used for unknown indication
     Dosage: UNK
     Route: 065

REACTIONS (5)
  - Aspiration [Unknown]
  - Brain injury [Unknown]
  - Cardiac arrest [Unknown]
  - Loss of consciousness [Unknown]
  - Accidental overdose [Unknown]
